FAERS Safety Report 9164557 (Version 2)
Quarter: 2013Q2

REPORT INFORMATION
  Report Type: Spontaneous
  Country: US (occurrence: US)
  Receive Date: 20130315
  Receipt Date: 20130401
  Transmission Date: 20140414
  Serious: No
  Sender: FDA-Public Use
  Company Number: PHEH2013US005834

PATIENT
  Sex: Male

DRUGS (4)
  1. VALSARTAN + HCT [Suspect]
     Dosage: 1 DF(VALS 160 MG/ HCT 12.5 MG)
  2. METFORMIN [Concomitant]
     Dosage: UNK UKN, UNK
  3. CLONAZEPAM [Concomitant]
     Dosage: UNK UKN, UNK
  4. CYCLOBENZAPRINE HYDROCHLORIDE [Concomitant]
     Dosage: UNK UKN, UNK

REACTIONS (1)
  - Muscle spasms [Unknown]
